FAERS Safety Report 8322575-2 (Version None)
Quarter: 2012Q2

REPORT INFORMATION
  Report Type: 
  Country: None (occurrence: None)
  Receive Date: 20120430
  Receipt Date: 20120420
  Transmission Date: 20120825
  Serious: Yes (Other)
  Sender: FDA-Public Use
  Company Number: CA-JNJFOC-20120410287

PATIENT
  Sex: Male
  Weight: 88.45 kg

DRUGS (1)
  1. REMICADE [Suspect]
     Indication: CROHN'S DISEASE
     Dosage: 0-2-6
     Route: 042

REACTIONS (4)
  - PARAESTHESIA [None]
  - COUGH [None]
  - FLUSHING [None]
  - INFUSION RELATED REACTION [None]
